FAERS Safety Report 9527774 (Version 1)
Quarter: 2013Q1

REPORT INFORMATION
  Report Type: Spontaneous
  Country: US (occurrence: None)
  Receive Date: 20130314
  Receipt Date: 20130314
  Transmission Date: 20140127
  Serious: Yes (Other)
  Sender: FDA-Public Use
  Company Number: 1211USA008021

PATIENT
  Age: 44 Year
  Sex: Male

DRUGS (3)
  1. PEGINTRON [Suspect]
     Indication: HEPATITIS C
     Dosage: UNK, SUBCUTANEOUS
     Route: 058
     Dates: start: 20121116
  2. RIBAVIRIN (RIBAVIRIN) CAPSULE [Suspect]
     Indication: HEPATITIS C
     Dosage: UNK, ORAL
     Route: 048
     Dates: start: 20121116
  3. VICTRELIS [Suspect]
     Indication: HEPATITIS C
     Dosage: UNK, ORAL
     Route: 048
     Dates: start: 20121215

REACTIONS (9)
  - Nausea [None]
  - Myalgia [None]
  - Weight decreased [None]
  - Fatigue [None]
  - Pain [None]
  - Poor quality sleep [None]
  - Headache [None]
  - Stress [None]
  - Back pain [None]
